FAERS Safety Report 9524596 (Version 1)
Quarter: 2013Q1

REPORT INFORMATION
  Report Type: Spontaneous
  Country: US (occurrence: None)
  Receive Date: 20130314
  Receipt Date: 20130314
  Transmission Date: 20140127
  Serious: No
  Sender: FDA-Public Use
  Company Number: 1301USA002205

PATIENT
  Age: 57 Year
  Sex: Male
  Weight: 90.7 kg

DRUGS (7)
  1. VICTRELIS (BOCEPREVIR) CAPSULE, 200MG [Suspect]
     Dosage: 800 MG, TID, ORAL
     Route: 048
  2. PEGASYS (PEGINTERFERON ALFA-2A) INJECTION, 180MCG/M [Suspect]
  3. RIBAPAK (RIBAVIRIN) [Suspect]
     Dosage: 1200, QD
  4. BUPROPION HYDROCHLORIDE (BUPROPION HYDROCHLORIDE) [Concomitant]
  5. SONATA (ZALEPLON) [Concomitant]
  6. LOVAZA (OMEGA-3 ACID ETHYL ESTERS) [Concomitant]
  7. VITAMINS (UNSPECIFIED) (VITAMINS UNSPECIFIED) [Concomitant]

REACTIONS (6)
  - Rash pruritic [None]
  - Fatigue [None]
  - Dyspnoea [None]
  - Dizziness [None]
  - Anxiety [None]
  - Rash generalised [None]
